FAERS Safety Report 18019556 (Version 4)
Quarter: 2020Q3

REPORT INFORMATION
  Report Type: Spontaneous
  Country: PY (occurrence: PY)
  Receive Date: 20200714
  Receipt Date: 20200922
  Transmission Date: 20201103
  Serious: Yes (Death, Hospitalization, Other)
  Sender: FDA-Public Use
  Company Number: PY-SA-2020SA177785

PATIENT

DRUGS (1)
  1. MYOZYME [Suspect]
     Active Substance: ALGLUCOSIDASE ALFA
     Dosage: 20 MG/KG, QOW
     Route: 041
     Dates: start: 201410, end: 20200708

REACTIONS (5)
  - SARS-CoV-2 test positive [Unknown]
  - COVID-19 [Unknown]
  - Pneumonia [Fatal]
  - Septic shock [Fatal]
  - Infectious pleural effusion [Fatal]

NARRATIVE: CASE EVENT DATE: 2020
